FAERS Safety Report 6031950-0 (Version None)
Quarter: 2009Q1

REPORT INFORMATION
  Report Type: 
  Country: None (occurrence: None)
  Receive Date: 20090108
  Receipt Date: 20081220
  Transmission Date: 20090719
  Serious: Yes (Hospitalization)
  Sender: FDA-Public Use
  Company Number: FR-PFIZER INC-2008093969

PATIENT

DRUGS (3)
  1. LYRICA [Suspect]
     Indication: NEURALGIA
  2. MORPHINE SULFATE [Concomitant]
  3. KETOPROFEN [Concomitant]

REACTIONS (5)
  - ANAEMIA [None]
  - GENERAL PHYSICAL HEALTH DETERIORATION [None]
  - MALAISE [None]
  - ORTHOSTATIC HYPOTENSION [None]
  - URINARY TRACT INFECTION [None]
